FAERS Safety Report 15412761 (Version 1)
Quarter: 2018Q3

REPORT INFORMATION
  Report Type: Report from Study
  Country: BR (occurrence: BR)
  Receive Date: 20180921
  Receipt Date: 20180921
  Transmission Date: 20181010
  Serious: Yes (Hospitalization)
  Sender: FDA-Public Use
  Company Number: PHHY2018BR098531

PATIENT
  Age: 59 Year
  Sex: Female
  Weight: 54 kg

DRUGS (2)
  1. TRAVATAN [Suspect]
     Active Substance: TRAVOPROST
     Indication: GLAUCOMA
     Dosage: QHS
     Route: 065
  2. GLAUCOTRAT [Suspect]
     Active Substance: TIMOLOL MALEATE
     Indication: GLAUCOMA
     Dosage: 1 GTT, IN EACH EYE
     Route: 065

REACTIONS (6)
  - Speech disorder [Unknown]
  - Malaise [Unknown]
  - Muscular weakness [Recovering/Resolving]
  - Mobility decreased [Recovering/Resolving]
  - Headache [Recovered/Resolved]
  - Coordination abnormal [Recovering/Resolving]

NARRATIVE: CASE EVENT DATE: 201804
